FAERS Safety Report 17109047 (Version 1)
Quarter: 2019Q4

REPORT INFORMATION
  Report Type: Spontaneous
  Country: AU (occurrence: AU)
  Receive Date: 20191204
  Receipt Date: 20191204
  Transmission Date: 20200122
  Serious: Yes (Other)
  Sender: FDA-Public Use
  Company Number: AU-ROCHE-2484559

PATIENT
  Age: 47 Year
  Sex: Male
  Weight: 150 kg

DRUGS (2)
  1. NOVOSEVEN [Concomitant]
     Active Substance: COAGULATION FACTOR VIIA RECOMBINANT HUMAN
     Dosage: WITH GRADUAL WEAN OVER TWO WEEKS
     Route: 042
     Dates: start: 20191029, end: 20191113
  2. HEMLIBRA [Suspect]
     Active Substance: EMICIZUMAB-KXWH
     Indication: HAEMOPHILIA
     Dosage: FORTNIGHTLY
     Route: 058
     Dates: start: 20191106

REACTIONS (1)
  - Device related thrombosis [Recovering/Resolving]

NARRATIVE: CASE EVENT DATE: 20191115
